FAERS Safety Report 10062154 (Version 1)
Quarter: 2014Q2

REPORT INFORMATION
  Report Type: Report from Study
  Country: TR (occurrence: TR)
  Receive Date: 20140407
  Receipt Date: 20140407
  Transmission Date: 20141212
  Serious: Yes (Death, Hospitalization)
  Sender: FDA-Public Use
  Company Number: TR-ACTELION-A-CH2014-96989

PATIENT
  Age: 53 Year
  Sex: Female

DRUGS (1)
  1. TRACLEER [Suspect]
     Indication: PRODUCT USED FOR UNKNOWN INDICATION
     Route: 048

REACTIONS (5)
  - Hypertension [Fatal]
  - Hepatic cirrhosis [Unknown]
  - Cardiac operation [Recovered/Resolved]
  - Liver function test abnormal [Unknown]
  - Exercise test abnormal [Unknown]
